FAERS Safety Report 7765651-5 (Version None)
Quarter: 2011Q3

REPORT INFORMATION
  Report Type: 
  Country: None (occurrence: None)
  Receive Date: 20110921
  Receipt Date: 20110919
  Transmission Date: 20111222
  Serious: Yes (Hospitalization, Other)
  Sender: FDA-Public Use
  Company Number: CH-PFIZER INC-2011208093

PATIENT
  Age: 85 Year
  Sex: Female

DRUGS (3)
  1. SINTROM [Concomitant]
  2. CLINDAMYCIN HCL [Suspect]
     Indication: ERYSIPELAS
     Dosage: 300 MG, UNK
  3. NEXIUM [Concomitant]

REACTIONS (3)
  - INCORRECT ROUTE OF DRUG ADMINISTRATION [None]
  - COUGH [None]
  - PNEUMONIA ASPIRATION [None]
